FAERS Safety Report 14038556 (Version 1)
Quarter: 2017Q4

REPORT INFORMATION
  Report Type: Spontaneous
  Country: FR (occurrence: FR)
  Receive Date: 20171004
  Receipt Date: 20171004
  Transmission Date: 20180321
  Serious: Yes (Life-Threatening, Hospitalization)
  Sender: FDA-Public Use
  Company Number: FR-PFIZER INC-2017420400

PATIENT
  Age: 34 Year
  Sex: Male
  Weight: 61 kg

DRUGS (13)
  1. IDARUBICINE [Concomitant]
     Active Substance: IDARUBICIN
     Indication: ACUTE MYELOID LEUKAEMIA
     Dosage: 12 MG/M2, CYCLIC ON D1 AND D3 (INDUCTION)
     Dates: start: 20170516, end: 20170518
  2. ACICLOVIR [Concomitant]
     Active Substance: ACYCLOVIR
  3. PHLOROGLUCINOL [Concomitant]
     Active Substance: PHLOROGLUCINOL
  4. ARACYTINE [Suspect]
     Active Substance: CYTARABINE
     Dosage: 5400 MG, CYCLIC ON D1, D3 AND D5 (CONSOLIDATION 1)
     Route: 040
     Dates: start: 20170830, end: 20170904
  5. ARACYTINE [Suspect]
     Active Substance: CYTARABINE
     Indication: ACUTE MYELOID LEUKAEMIA
     Dosage: 200 MG/M2, CYCLIC ON D1 AND D3 (INDUCTION)
     Route: 042
     Dates: start: 20170516, end: 20170523
  6. ACUPAN [Concomitant]
     Active Substance: NEFOPAM HYDROCHLORIDE
  7. HYDROXYZINE [Concomitant]
     Active Substance: HYDROXYZINE HYDROCHLORIDE
  8. NICOPATCH [Concomitant]
     Active Substance: NICOTINE
  9. PARACETAMOL [Concomitant]
     Active Substance: ACETAMINOPHEN
  10. INEXIUM /01479302/ [Concomitant]
     Active Substance: ESOMEPRAZOLE MAGNESIUM
  11. ZOPHREN /00955301/ [Concomitant]
     Active Substance: ONDANSETRON
  12. MORPHINE [Concomitant]
     Active Substance: MORPHINE
     Dosage: PATIENT-CONTROLLED ANALGESIA
  13. SOLUPRED /00016201/ [Concomitant]
     Active Substance: PREDNISOLONE
     Dosage: 80 MG, DAILY

REACTIONS (7)
  - Hypoxia [Not Recovered/Not Resolved]
  - Hydrocholecystis [Not Recovered/Not Resolved]
  - Mucosal inflammation [Not Recovered/Not Resolved]
  - Pleural effusion [Not Recovered/Not Resolved]
  - Febrile bone marrow aplasia [Not Recovered/Not Resolved]
  - Sepsis [Not Recovered/Not Resolved]
  - Chills [Not Recovered/Not Resolved]

NARRATIVE: CASE EVENT DATE: 20170908
